FAERS Safety Report 5631585-5 (Version None)
Quarter: 2008Q1

REPORT INFORMATION
  Report Type: 
  Country: None (occurrence: None)
  Receive Date: 20080215
  Receipt Date: 20080206
  Transmission Date: 20080703
  Serious: Yes (Other)
  Sender: FDA-Public Use
  Company Number: 2008003368

PATIENT
  Age: 21 Year
  Sex: Female
  Weight: 83.9 kg

DRUGS (1)
  1. BENADRYL D ALLERGY + SINUS (DIPHENHYDRAMINE HYDROCHLORIDE, PHENYLEPHRI [Suspect]
     Indication: SINUS HEADACHE
     Dosage: 1 TABLET, 1 PER DAY (1 IN 1 D), ORAL
     Route: 048
     Dates: start: 20070828, end: 20070828

REACTIONS (4)
  - DEHYDRATION [None]
  - GASTRIC HAEMORRHAGE [None]
  - NAUSEA [None]
  - TACHYCARDIA [None]
